FAERS Safety Report 21887140 (Version 2)
Quarter: 2023Q1

REPORT INFORMATION
  Report Type: Report from Study
  Country: US (occurrence: US)
  Receive Date: 20230119
  Receipt Date: 20230123
  Transmission Date: 20230418
  Serious: Yes (Hospitalization)
  Sender: FDA-Public Use
  Company Number: US-ABBVIE-4274972

PATIENT
  Sex: Male

DRUGS (2)
  1. HUMIRA [Suspect]
     Active Substance: ADALIMUMAB
     Indication: Psoriatic arthropathy
     Route: 058
     Dates: start: 2017
  2. HUMIRA [Suspect]
     Active Substance: ADALIMUMAB
     Indication: Psoriasis
     Route: 058

REACTIONS (8)
  - Skin exfoliation [Recovering/Resolving]
  - Arthralgia [Recovering/Resolving]
  - Therapeutic product effect incomplete [Unknown]
  - Discomfort [Recovering/Resolving]
  - Wound haemorrhage [Recovering/Resolving]
  - Therapeutic product effect decreased [Unknown]
  - Wound secretion [Recovering/Resolving]
  - Skin plaque [Unknown]
